FAERS Safety Report 5130349-9 (Version None)
Quarter: 2006Q4

REPORT INFORMATION
  Report Type: 
  Country: None (occurrence: None)
  Receive Date: 20061018
  Receipt Date: 20061018
  Transmission Date: 20070319
  Serious: Yes (Other)
  Sender: FDA-Public Use
  Company Number: None

PATIENT
  Age: 31 Year
  Sex: Female
  Weight: 104.3273 kg

DRUGS (2)
  1. ORTHO EVRA [Suspect]
     Indication: CONTRACEPTION
     Dosage: PATCH WEEKLY TRANSDERMAL
     Route: 062
     Dates: start: 20020801, end: 20030803
  2. MAXALT [Suspect]
     Indication: MIGRAINE
     Dosage: PRN S1
     Dates: start: 20030803, end: 20030803

REACTIONS (5)
  - CRYING [None]
  - FATIGUE [None]
  - FLAT AFFECT [None]
  - MIGRAINE [None]
  - REVERSIBLE ISCHAEMIC NEUROLOGICAL DEFICIT [None]
